FAERS Safety Report 7953701-2 (Version None)
Quarter: 2011Q4

REPORT INFORMATION
  Report Type: 
  Country: None (occurrence: None)
  Receive Date: 20111129
  Receipt Date: 20111116
  Transmission Date: 20120403
  Serious: Yes (Death, Life-Threatening)
  Sender: FDA-Public Use
  Company Number: LEO-2011-01005

PATIENT
  Age: 56 Year
  Sex: Female

DRUGS (2)
  1. INNOHEP [Suspect]
     Indication: PRODUCT USED FOR UNKNOWN INDICATION
     Dosage: (1 IN 1 D),SUBCUTANEOUS
     Route: 058
     Dates: end: 20110812
  2. PENTOXIFYLLINE [Suspect]
     Indication: PRODUCT USED FOR UNKNOWN INDICATION
     Dosage: ORAL
     Route: 048
     Dates: end: 20110812

REACTIONS (6)
  - ASPIRATION [None]
  - SUBDURAL HAEMATOMA [None]
  - COAGULATION TIME PROLONGED [None]
  - COMA [None]
  - PROTHROMBIN TIME PROLONGED [None]
  - INTERNATIONAL NORMALISED RATIO INCREASED [None]
